FAERS Safety Report 19917243 (Version 1)
Quarter: 2021Q4

REPORT INFORMATION
  Report Type: Spontaneous
  Country: US (occurrence: US)
  Receive Date: 20211004
  Receipt Date: 20211004
  Transmission Date: 20220303
  Serious: No
  Sender: FDA-Public Use
  Company Number: US-OTSUKA-2021_013681

PATIENT
  Sex: Female

DRUGS (5)
  1. ABILIFY [Suspect]
     Active Substance: ARIPIPRAZOLE
     Indication: Major depression
     Dosage: 10 MG
     Route: 065
     Dates: start: 2021
  2. ABILIFY [Suspect]
     Active Substance: ARIPIPRAZOLE
     Dosage: 2.5 MG
     Route: 065
     Dates: start: 2021, end: 2021
  3. ABILIFY [Suspect]
     Active Substance: ARIPIPRAZOLE
     Dosage: 5 MG
     Route: 065
     Dates: start: 2021, end: 2021
  4. ABILIFY [Suspect]
     Active Substance: ARIPIPRAZOLE
     Dosage: 7.5 MG
     Route: 065
     Dates: start: 2021, end: 2021
  5. PRISTIQ EXTENDED-RELEASE [Suspect]
     Active Substance: DESVENLAFAXINE SUCCINATE
     Indication: Major depression
     Dosage: UNK
     Route: 065

REACTIONS (2)
  - Restlessness [Not Recovered/Not Resolved]
  - Agitation [Not Recovered/Not Resolved]
